FAERS Safety Report 5191987-0 (Version None)
Quarter: 2006Q4

REPORT INFORMATION
  Report Type: 
  Country: None (occurrence: None)
  Receive Date: 20061220
  Receipt Date: 20061205
  Transmission Date: 20070319
  Serious: Yes (Hospitalization)
  Sender: FDA-Public Use
  Company Number: 02100-JPN-06-0585

PATIENT
  Age: 63 Year
  Sex: Female

DRUGS (31)
  1. CILOSTAZOL [Suspect]
     Indication: CEREBRAL INFARCTION
     Dosage: ONE OF 200 MG ORAL
     Route: 048
     Dates: start: 20060831, end: 20061127
  2. CLOPIDOGREL [Suspect]
     Indication: CEREBRAL INFARCTION
     Dosage: 75MG, ORAL
     Route: 048
     Dates: start: 20060831, end: 20061127
  3. CANDESARTAN CILEXETIL [Concomitant]
  4. HYDROCHLOROTHIAZIDE [Concomitant]
  5. TEPRENONE [Concomitant]
  6. GINKGO BILOBA LEAF EXTRACT [Concomitant]
  7. CLOPIDOGREL [Concomitant]
  8. METFORMIN HCI [Concomitant]
  9. FLUTICASONE PROPIONATE [Concomitant]
  10. SALMETEROL XINAFOATE [Concomitant]
  11. DOXOFYLLINE [Concomitant]
  12. MONTELUKAST [Concomitant]
  13. SALBUTAMOL SULFATE [Concomitant]
  14. NATEGLINIDE [Concomitant]
  15. ALUMINIUM MAGNESIUM SILICATE [Concomitant]
  16. BIODIASTASE [Concomitant]
  17. GLYCYRRHIZA POWDER [Concomitant]
  18. LIPASE AP6 [Concomitant]
  19. PRECIPITATED CALCIUM CARBONATE [Concomitant]
  20. SCOPOLIA EXTRACT [Concomitant]
  21. SODIUM CARBONATE HYDROXIDE [Concomitant]
  22. TRIMEBUTINE MALEATE [Concomitant]
  23. IBUPROFEN [Concomitant]
  24. ARGININE [Concomitant]
  25. DIAZEPAM [Concomitant]
  26. KETOROLAC TROMETHAMINE [Concomitant]
  27. CEFUROXIME AXETIL [Concomitant]
  28. LORATADINE [Concomitant]
  29. IVY DRIED LEAF EXTRACT [Concomitant]
  30. MONTELUKAST [Concomitant]
  31. ASPIRIN [Concomitant]

REACTIONS (1)
  - MACULOPATHY [None]
